FAERS Safety Report 20856042 (Version 1)
Quarter: 2022Q2

REPORT INFORMATION
  Report Type: Spontaneous
  Country: US (occurrence: US)
  Receive Date: 20220520
  Receipt Date: 20220520
  Transmission Date: 20220721
  Serious: No
  Sender: FDA-Public Use
  Company Number: US-BEIGENE USA INC-BGN-2022-005517

PATIENT

DRUGS (5)
  1. BRUKINSA [Suspect]
     Active Substance: ZANUBRUTINIB
     Indication: Lymphoma
     Dosage: 4 PILLS ALL AT ONCE
     Dates: end: 20220513
  2. RITUXIMAB [Concomitant]
     Active Substance: RITUXIMAB
     Indication: Lymphoma
     Dosage: HAS THREE MORE TREATMENTS
  3. ALLOPURINOL [Concomitant]
     Active Substance: ALLOPURINOL
     Indication: Gout
     Dosage: 1 TABLET, QD
     Route: 048
  4. AMLODIPINE [Concomitant]
     Active Substance: AMLODIPINE BESYLATE
     Indication: Blood pressure measurement
     Dosage: 1 TAB, QD
     Route: 048
  5. BISOPROLOL [Concomitant]
     Active Substance: BISOPROLOL
     Indication: Cardiac failure congestive
     Dosage: 1/2 TAB, QD
     Route: 048

REACTIONS (3)
  - Dyspnoea [Unknown]
  - Neoplasm progression [Unknown]
  - Product availability issue [Unknown]

NARRATIVE: CASE EVENT DATE: 20220513
